FAERS Safety Report 8387698 (Version 4)
Quarter: 2013Q1

REPORT INFORMATION
  Report Type: Spontaneous
  Country: US (occurrence: US)
  Receive Date: 20120203
  Receipt Date: 20130325
  Transmission Date: 20140127
  Serious: Yes (Other)
  Sender: FDA-Public Use
  Company Number: US-PFIZER INC-2012027640

PATIENT
  Age: 67 Year
  Sex: Male
  Weight: 86.2 kg

DRUGS (4)
  1. EFFEXOR XR [Suspect]
     Indication: DEPRESSION
     Dosage: 150 MG, DAILY
  2. EFFEXOR XR [Suspect]
     Indication: NERVOUSNESS
     Dosage: 150 MG, 1X/DAY
  3. LYRICA [Suspect]
     Indication: NERVE INJURY
     Dosage: 225 MG, DAILY
     Dates: start: 2009
  4. LEVOTHYROXINE [Concomitant]
     Indication: THYROID DISORDER
     Dosage: 100 UG, 1X/DAY
     Dates: start: 2007

REACTIONS (5)
  - Pain in extremity [Unknown]
  - Gait disturbance [Unknown]
  - Gallbladder pain [Unknown]
  - Insomnia [Unknown]
  - Paraesthesia [Unknown]
